FAERS Safety Report 5612291-X (Version None)
Quarter: 2008Q1

REPORT INFORMATION
  Report Type: 
  Country: None (occurrence: None)
  Receive Date: 20080130
  Receipt Date: 20080123
  Transmission Date: 20080703
  Serious: Yes (Hospitalization)
  Sender: FDA-Public Use
  Company Number: A0688286A

PATIENT
  Age: 43 Year
  Sex: Male

DRUGS (1)
  1. CALCIUM CARBONATE                      (CALCIUM CARBONATE) [Suspect]
     Indication: DRUG USE FOR UNKNOWN INDICATION
     Dosage: 1 TABLET/THREE TIMES PER DAY; ORAL
     Route: 048
     Dates: start: 19970101, end: 20070101

REACTIONS (3)
  - LIVER DISORDER [None]
  - LUNG OPERATION [None]
  - VOMITING [None]
